FAERS Safety Report 5467867-X (Version None)
Quarter: 2007Q3

REPORT INFORMATION
  Report Type: 
  Country: None (occurrence: None)
  Receive Date: 20070921
  Receipt Date: 20070919
  Transmission Date: 20080115
  Serious: No
  Sender: FDA-Public Use
  Company Number: TCI2007A04470

PATIENT
  Age: 43 Year
  Sex: Female

DRUGS (6)
  1. LEUPROLIDE ACETATE [Suspect]
     Indication: UTERINE LEIOMYOMA
     Dosage: 1.88 MG (1.88 MG, 1 IN 28 D)
     Route: 058
     Dates: start: 20070608, end: 20070803
  2. BLOPRESS              (CANDESARTAN CILIEXETIL) [Concomitant]
  3. CALSLOT             (MANIDIPINE HYDROCHLORIDE) (TABLETS) [Concomitant]
  4. MERCAZOLE                   (THIAMAZOLE) (TABLETS) [Concomitant]
  5. INDERAL                         (PROPRANOLOL HYDROCHLORIDE) (TABLETS) [Concomitant]
  6. ALTAT                       (ROXATIDINE ACETATE HYDROCHLORIDE) (CAPSUL [Concomitant]

REACTIONS (4)
  - ABDOMINAL PAIN UPPER [None]
  - BASEDOW'S DISEASE [None]
  - CONDITION AGGRAVATED [None]
  - HYPERHIDROSIS [None]
